FAERS Safety Report 18689090 (Version 1)
Quarter: 2020Q4

REPORT INFORMATION
  Report Type: Spontaneous
  Country: US (occurrence: US)
  Receive Date: 20201231
  Receipt Date: 20201231
  Transmission Date: 20210114
  Serious: Yes (Death, Other)
  Sender: FDA-Public Use
  Company Number: US-AMGEN-USASP2020211163

PATIENT
  Sex: Female

DRUGS (5)
  1. LEUCOVORINE [Concomitant]
     Active Substance: LEUCOVORIN
     Indication: BREAST CANCER STAGE II
     Dosage: 500 MILLIGRAM/SQ. METER, Q3WK,  DAYS 1, 2, AND 3
     Route: 040
  2. DOXORUBICIN [Concomitant]
     Active Substance: DOXORUBICIN
     Indication: BREAST CANCER STAGE II
     Dosage: 15 MILLIGRAM/SQ. METER, Q3WK, DAYS 1, 2, AND 3
     Route: 040
  3. FILGRASTIM [Suspect]
     Active Substance: FILGRASTIM
     Indication: PROPHYLAXIS
     Dosage: 5 MICROGRAM/KILOGRAM, QD
     Route: 058
     Dates: start: 1994
  4. 5-FLUOROURACIL [FLUOROURACIL] [Concomitant]
     Active Substance: FLUOROURACIL
     Indication: BREAST CANCER STAGE II
     Dosage: 400 MILLIGRAM/SQ. METER, Q3WK, DAYS 1, 2, AND 3
     Route: 040
  5. CYCLOPHOSPHAMIDE. [Concomitant]
     Active Substance: CYCLOPHOSPHAMIDE
     Indication: BREAST CANCER STAGE II
     Dosage: 600 MILLIGRAM/SQ. METER, Q3WK, DAY 1
     Route: 040

REACTIONS (2)
  - Death [Fatal]
  - Breast cancer recurrent [Unknown]
